FAERS Safety Report 5451001-6 (Version None)
Quarter: 2007Q3

REPORT INFORMATION
  Report Type: 
  Country: None (occurrence: None)
  Receive Date: 20070913
  Receipt Date: 20070907
  Transmission Date: 20080115
  Serious: Yes (Hospitalization)
  Sender: FDA-Public Use
  Company Number: US-JNJFOC-20070901361

PATIENT
  Age: 38 Year
  Sex: Female

DRUGS (10)
  1. ACETAMINOPHEN [Suspect]
  2. ACETAMINOPHEN [Suspect]
     Indication: OSTEOARTHRITIS
     Dosage: FOR 3 YEARS
  3. NAPROXEN [Suspect]
     Indication: OSTEOARTHRITIS
     Dosage: FOR 3 YEARS
  4. CAFFEINE [Interacting]
     Indication: DRUG USE FOR UNKNOWN INDICATION
     Dosage: 4-6 CUPS PER DAY
  5. DIPHENHYDRAMINE HYDROCHLORIDE [Concomitant]
  6. CONJUGATED ESTROGEN [Concomitant]
  7. METOCLOPRAMIDE [Concomitant]
  8. FENOFIBRATE [Concomitant]
  9. VENLAFAXINE HCL [Concomitant]
  10. PANTOPRAZOLE SODIUM [Concomitant]

REACTIONS (4)
  - DRUG INTERACTION [None]
  - HYDRONEPHROSIS [None]
  - INTENTIONAL DRUG MISUSE [None]
  - NEPHROPATHY TOXIC [None]
